FAERS Safety Report 24304294 (Version 1)
Quarter: 2024Q3

REPORT INFORMATION
  Report Type: Spontaneous
  Country: TR (occurrence: TR)
  Receive Date: 20240910
  Receipt Date: 20240910
  Transmission Date: 20241017
  Serious: Yes (Other)
  Sender: NOVARTIS
  Company Number: TR-002147023-PHHY2018TR031814

PATIENT
  Age: 34 Year
  Sex: Male

DRUGS (4)
  1. TRILEPTAL [Suspect]
     Active Substance: OXCARBAZEPINE
     Indication: Epilepsy
     Dosage: 600 MG
     Route: 048
  2. TRILEPTAL [Suspect]
     Active Substance: OXCARBAZEPINE
     Indication: PFAPA syndrome
     Dosage: 150 MG, BID 150 MG IN THE MORNING AND IN THE EVENING
     Route: 048
  3. TRILEPTAL [Suspect]
     Active Substance: OXCARBAZEPINE
     Dosage: 300 MG, TID
     Route: 065
  4. TRILEPTAL [Suspect]
     Active Substance: OXCARBAZEPINE
     Dosage: UNK
     Route: 065

REACTIONS (18)
  - Seizure [Recovered/Resolved]
  - Seizure [Not Recovered/Not Resolved]
  - Gingival bleeding [Not Recovered/Not Resolved]
  - Gingival hypertrophy [Not Recovered/Not Resolved]
  - Nasal congestion [Unknown]
  - Gastrointestinal disorder [Not Recovered/Not Resolved]
  - Wound [Unknown]
  - Monocyte count increased [Unknown]
  - Gingival disorder [Unknown]
  - Oral discomfort [Unknown]
  - Product use in unapproved indication [Unknown]
  - Acne [Not Recovered/Not Resolved]
  - Eosinophil count increased [Recovered/Resolved]
  - Vomiting [Unknown]
  - Agitation [Unknown]
  - Rash [Recovered/Resolved]
  - Diarrhoea [Not Recovered/Not Resolved]
  - Irritability [Unknown]

NARRATIVE: CASE EVENT DATE: 20180216
